FAERS Safety Report 6002186-4 (Version None)
Quarter: 2008Q4

REPORT INFORMATION
  Report Type: 
  Country: None (occurrence: None)
  Receive Date: 20081212
  Receipt Date: 20081204
  Transmission Date: 20090506
  Serious: Yes (Other)
  Sender: FDA-Public Use
  Company Number: PIR00306-124200893620

PATIENT
  Sex: Male

DRUGS (1)
  1. HIBICLENS [Suspect]
     Indication: ANTIBIOTIC THERAPY
     Dosage: 060
     Dates: start: 20081001

REACTIONS (1)
  - RASH [None]
